FAERS Safety Report 8173107 (Version 4)
Quarter: 2013Q4

REPORT INFORMATION
  Report Type: Report from Study
  Country: RU (occurrence: RU)
  Receive Date: 20111007
  Receipt Date: 20131227
  Transmission Date: 20140711
  Serious: Yes (Other)
  Sender: FDA-Public Use
  Company Number: RU-CELGENEUS-251-C5013-11093594

PATIENT
  Age: 78 Year
  Sex: Male
  Weight: 104.5 kg

DRUGS (1)
  1. CC-5013 [Suspect]
     Indication: MANTLE CELL LYMPHOMA
     Dosage: 10 MILLIGRAM
     Route: 048
     Dates: start: 20100727, end: 20110717

REACTIONS (1)
  - Adenocarcinoma gastric [Recovered/Resolved]
